FAERS Safety Report 20797634 (Version 2)
Quarter: 2022Q3

REPORT INFORMATION
  Report Type: Report from Study
  Country: FR (occurrence: FR)
  Receive Date: 20220506
  Receipt Date: 20220915
  Transmission Date: 20221026
  Serious: Yes (Death)
  Sender: FDA-Public Use
  Company Number: FR-NOVARTISPH-NVSC2021FR229430

PATIENT
  Age: 46 Year
  Sex: Male
  Weight: 73 kg

DRUGS (8)
  1. UNSPECIFIED INGREDIENT [Suspect]
     Active Substance: UNSPECIFIED INGREDIENT
     Indication: Philadelphia positive acute lymphocytic leukaemia
     Dosage: NO TREATMENT
     Route: 065
  2. NELARABINE [Suspect]
     Active Substance: NELARABINE
     Indication: Product used for unknown indication
     Dosage: 2685 MG
     Route: 065
     Dates: start: 20180709
  3. NELARABINE [Suspect]
     Active Substance: NELARABINE
     Dosage: 2685 MG
     Route: 065
     Dates: start: 20180711
  4. NELARABINE [Suspect]
     Active Substance: NELARABINE
     Dosage: 2685 MG
     Route: 065
     Dates: start: 20180713
  5. CYTARABINE [Suspect]
     Active Substance: CYTARABINE
     Indication: Product used for unknown indication
     Dosage: 5000 MG
     Route: 042
     Dates: start: 20180814, end: 20180817
  6. PEGASPARGASE [Suspect]
     Active Substance: PEGASPARGASE
     Indication: Product used for unknown indication
     Dosage: 3750 MG
     Route: 042
     Dates: start: 20180817
  7. VINCRISTINE [Suspect]
     Active Substance: VINCRISTINE
     Indication: Product used for unknown indication
     Dosage: 2 MG
     Route: 042
     Dates: start: 20180814
  8. FLUDARABINE [Concomitant]
     Active Substance: FLUDARABINE PHOSPHATE
     Indication: Graft infection
     Dosage: 50 MG
     Route: 042
     Dates: start: 20180908, end: 20180911

REACTIONS (2)
  - Shock haemorrhagic [Fatal]
  - Septic shock [Fatal]

NARRATIVE: CASE EVENT DATE: 20180922
